FAERS Safety Report 5580085-X (Version None)
Quarter: 2007Q4

REPORT INFORMATION
  Report Type: 
  Country: None (occurrence: None)
  Receive Date: 20071227
  Receipt Date: 20071227
  Transmission Date: 20080405
  Serious: No
  Sender: FDA-Public Use
  Company Number: None

PATIENT
  Sex: Male
  Weight: 101 kg

DRUGS (3)
  1. CYTARABINE [Suspect]
     Dosage: 1456 MG
     Dates: end: 20071023
  2. DAUNORUBICIN HCL [Suspect]
     Dosage: 561 MG
     Dates: end: 20071019
  3. ETOPOSIDE [Suspect]
     Dosage: 624 MG
     Dates: end: 20071019

REACTIONS (10)
  - ELECTROLYTE IMBALANCE [None]
  - HAEMODIALYSIS [None]
  - HEADACHE [None]
  - HYPOXIA [None]
  - LEUKOSTASIS [None]
  - OLIGURIA [None]
  - RENAL FAILURE ACUTE [None]
  - TACHYCARDIA [None]
  - TACHYPNOEA [None]
  - TUMOUR NECROSIS [None]
